FAERS Safety Report 5743276-0 (Version None)
Quarter: 2008Q2

REPORT INFORMATION
  Report Type: 
  Country: None (occurrence: None)
  Receive Date: 20080519
  Receipt Date: 20070920
  Transmission Date: 20081010
  Serious: Yes (Other)
  Sender: FDA-Public Use
  Company Number: BR-PFIZER INC-2007066304

PATIENT
  Sex: Male
  Weight: 75 kg

DRUGS (4)
  1. CHANTIX [Suspect]
     Indication: SMOKING CESSATION THERAPY
     Route: 048
  2. ENALAPRIL MALEATE [Concomitant]
  3. SOMALGIN [Concomitant]
  4. VASERETIC [Concomitant]

REACTIONS (4)
  - ABNORMAL FAECES [None]
  - ANAEMIA [None]
  - GASTRITIS [None]
  - HAEMATEMESIS [None]
